FAERS Safety Report 9625894 (Version 1)
Quarter: 2013Q4

REPORT INFORMATION
  Report Type: Spontaneous
  Country: US (occurrence: US)
  Receive Date: 20131016
  Receipt Date: 20131016
  Transmission Date: 20140711
  Serious: Yes (Other)
  Sender: FDA-Public Use
  Company Number: US-PURDUE-USA-2013-0107540

PATIENT
  Sex: 0

DRUGS (3)
  1. BUTRANS [Suspect]
     Indication: BACK PAIN
     Dosage: 20 MCG/HR, WEEKLY
     Route: 062
  2. LANTUS [Concomitant]
     Indication: DIABETES MELLITUS
     Dosage: 20 UNIT, QHS
     Route: 058
  3. NOVOLOG [Concomitant]
     Indication: DIABETES MELLITUS
     Dosage: AS NEEDED
     Route: 058

REACTIONS (1)
  - Blood glucose increased [Not Recovered/Not Resolved]
